FAERS Safety Report 11740488 (Version 2)
Quarter: 2015Q4

REPORT INFORMATION
  Report Type: Spontaneous
  Country: US (occurrence: US)
  Receive Date: 20151110
  Receipt Date: 20151120
  Transmission Date: 20160304
  Serious: Yes (Other)
  Sender: FDA-Public Use
  Company Number: US-ELI_LILLY_AND_COMPANY-US201202005358

PATIENT
  Age: 51 Year
  Sex: Female
  Weight: 43.5 kg

DRUGS (7)
  1. EVAMIST [Concomitant]
     Active Substance: ESTRADIOL
     Dosage: UNK UNK, QD
     Route: 062
  2. FORTEO [Suspect]
     Active Substance: TERIPARATIDE
     Dosage: 20 UG, QD
     Dates: end: 201211
  3. CALCIUM [Concomitant]
     Active Substance: CALCIUM
     Dosage: UNK, UNKNOWN
  4. FORTEO [Suspect]
     Active Substance: TERIPARATIDE
     Indication: OSTEOPOROSIS
     Dosage: 20 UG, QD
     Route: 058
     Dates: start: 20120104
  5. VAGIFEM [Concomitant]
     Active Substance: ESTRADIOL
     Dosage: 10 UG, UNK
  6. AMPICILLIN [Concomitant]
     Active Substance: AMPICILLIN
     Indication: URINARY TRACT INFECTION
  7. VITAMIN D [Concomitant]
     Active Substance: CHOLECALCIFEROL
     Dosage: UNK, UNKNOWN

REACTIONS (16)
  - Face injury [Unknown]
  - Injection site erythema [Unknown]
  - Blood calcium increased [Unknown]
  - Syncope [Unknown]
  - Mouth haemorrhage [Unknown]
  - Contusion [Unknown]
  - Injection site rash [Unknown]
  - Emotional disorder [Unknown]
  - Nausea [Not Recovered/Not Resolved]
  - Dizziness [Unknown]
  - Joint injury [Unknown]
  - Fall [Unknown]
  - Syncope [Recovered/Resolved]
  - Limb injury [Recovered/Resolved]
  - Malaise [Unknown]
  - Headache [Unknown]

NARRATIVE: CASE EVENT DATE: 20120104
